FAERS Safety Report 4622616-X (Version None)
Quarter: 2005Q1

REPORT INFORMATION
  Report Type: 
  Country: None (occurrence: None)
  Receive Date: 20050330
  Receipt Date: 20050318
  Transmission Date: 20050727
  Serious: Yes (Hospitalization)
  Sender: FDA-Public Use
  Company Number: US-GLAXOSMITHKLINE-A0550369A

PATIENT
  Age: 80 Year
  Sex: Female
  Weight: 81 kg

DRUGS (8)
  1. ECOTRIN REGULAR STRENGTH TABLETS [Suspect]
     Indication: PROPHYLAXIS
     Route: 048
     Dates: start: 20000719
  2. SYNTHROID [Concomitant]
     Indication: HYPOTHYROIDISM
     Route: 048
  3. CHONDROITIN/GLUCOSAMINE [Concomitant]
     Indication: ARTHRITIS
     Route: 048
  4. GLUCOTROL [Concomitant]
     Route: 048
  5. FUROSEMIDE [Concomitant]
     Indication: DIURETIC THERAPY
     Route: 048
  6. DITROPAN [Concomitant]
     Indication: URINARY INCONTINENCE
     Route: 048
  7. HYZAAR [Concomitant]
     Route: 048
  8. TYLENOL GEL TABS [Concomitant]
     Route: 048

REACTIONS (6)
  - BLOOD GLUCOSE INCREASED [None]
  - BLOOD POTASSIUM DECREASED [None]
  - FALL [None]
  - GAIT DISTURBANCE [None]
  - PULMONARY OEDEMA [None]
  - RIB FRACTURE [None]
